FAERS Safety Report 5640982-3 (Version None)
Quarter: 2008Q1

REPORT INFORMATION
  Report Type: 
  Country: None (occurrence: None)
  Receive Date: 20080227
  Receipt Date: 20080225
  Transmission Date: 20080703
  Serious: Yes (Life-Threatening)
  Sender: FDA-Public Use
  Company Number: AU-ASTRAZENECA-2008AP01364

PATIENT
  Age: 25290 Day
  Sex: Male
  Weight: 75 kg

DRUGS (5)
  1. PROPOFOL [Suspect]
     Route: 042
     Dates: start: 20070430, end: 20070430
  2. FENTANYL [Suspect]
     Dates: start: 20070430, end: 20070430
  3. MIDAZOLAM HCL [Suspect]
     Dates: start: 20070430, end: 20070430
  4. ROCURONIUM BROMIDE [Suspect]
     Dates: start: 20070430, end: 20070430
  5. CEFOXITIN SODIUM [Suspect]
     Dates: start: 20070430, end: 20070430

REACTIONS (3)
  - ANAPHYLACTIC SHOCK [None]
  - BLOOD PRESSURE DECREASED [None]
  - BRADYCARDIA [None]
